FAERS Safety Report 13995228 (Version 1)
Quarter: 2017Q3

REPORT INFORMATION
  Report Type: Spontaneous
  Country: IN (occurrence: IN)
  Receive Date: 20170921
  Receipt Date: 20170921
  Transmission Date: 20171128
  Serious: No
  Sender: FDA-Public Use
  Company Number: IN-LUPIN PHARMACEUTICALS INC.-E2B_00006113

PATIENT
  Age: 55 Year
  Sex: Male

DRUGS (10)
  1. EXERMET [Concomitant]
     Indication: PRODUCT USED FOR UNKNOWN INDICATION
     Dosage: 1 DF,BID,
     Route: 048
     Dates: start: 20160829
  2. FORCOX [Concomitant]
     Indication: PRODUCT USED FOR UNKNOWN INDICATION
     Dosage: 2 DF,QD,
     Route: 048
     Dates: start: 20160829
  3. CANDIFORCE [Concomitant]
     Indication: PRODUCT USED FOR UNKNOWN INDICATION
     Dosage: 1 DF,BID,
     Route: 048
     Dates: start: 20160829
  4. NEXPRO RD [Concomitant]
     Indication: PRODUCT USED FOR UNKNOWN INDICATION
     Dosage: 1 DF,BID,
     Route: 048
     Dates: start: 20160829
  5. CETIL 500 MG TABLETS [Suspect]
     Active Substance: CEFUROXIME AXETIL
     Indication: INFECTION
  6. BENADON [Concomitant]
     Active Substance: PYRIDOXINE HYDROCHLORIDE
     Indication: PRODUCT USED FOR UNKNOWN INDICATION
     Dosage: .5 DF,QD,
     Route: 048
     Dates: start: 20160829
  7. MAGSIM [Concomitant]
     Indication: PRODUCT USED FOR UNKNOWN INDICATION
     Dosage: UNK UNK,TID,
     Route: 065
     Dates: start: 20160829
  8. CETIL 500 MG TABLETS [Suspect]
     Active Substance: CEFUROXIME AXETIL
     Indication: LUNG INFECTION
     Dosage: 1 DF,BID,
     Route: 048
     Dates: start: 20160829
  9. L-CIN [Concomitant]
     Active Substance: LEVOFLOXACIN
     Indication: PRODUCT USED FOR UNKNOWN INDICATION
     Dosage: 1 DF,QD,
     Route: 048
     Dates: start: 20160829
  10. TRAMASURE [Concomitant]
     Indication: PRODUCT USED FOR UNKNOWN INDICATION
     Dosage: 1 DF,BID,
     Route: 048
     Dates: start: 20160829

REACTIONS (1)
  - Vomiting [Not Recovered/Not Resolved]

NARRATIVE: CASE EVENT DATE: 20160829
